FAERS Safety Report 5800805-6 (Version None)
Quarter: 2008Q3

REPORT INFORMATION
  Report Type: 
  Country: None (occurrence: None)
  Receive Date: 20080703
  Receipt Date: 20080627
  Transmission Date: 20090109
  Serious: Yes (Hospitalization)
  Sender: FDA-Public Use
  Company Number: JP-MERCK-0807USA00351

PATIENT
  Age: 75 Year
  Sex: Male

DRUGS (1)
  1. PEPCID RPD [Suspect]
     Route: 048
     Dates: start: 20080610, end: 20080611

REACTIONS (3)
  - LUNG DISORDER [None]
  - RENAL FAILURE ACUTE [None]
  - RHABDOMYOLYSIS [None]
